FAERS Safety Report 10213616 (Version 1)
Quarter: 2014Q2

REPORT INFORMATION
  Report Type: Spontaneous
  Country: US (occurrence: US)
  Receive Date: 20140603
  Receipt Date: 20140603
  Transmission Date: 20141212
  Serious: No
  Sender: FDA-Public Use
  Company Number: US-UPSHER-SMITH LABORATORIES, INC.-13004159

PATIENT
  Age: 86 Year
  Sex: Female

DRUGS (4)
  1. PACERONE (USL) [Suspect]
     Indication: ARRHYTHMIA
     Dosage: 100 MG, QD
     Route: 048
     Dates: start: 201305
  2. LEVOTHYROXINE SODIUM [Concomitant]
     Indication: HYPOTHYROIDISM
     Dosage: UNK
     Route: 048
     Dates: end: 201311
  3. SYNTHROID [Concomitant]
     Indication: HYPOTHYROIDISM
     Dosage: UNK
     Route: 048
     Dates: start: 201311
  4. EVISTA [Concomitant]
     Dosage: UNK

REACTIONS (7)
  - Tremor [Recovered/Resolved]
  - Dizziness [Recovered/Resolved]
  - Hyperhidrosis [Not Recovered/Not Resolved]
  - Constipation [Not Recovered/Not Resolved]
  - Paraesthesia [Not Recovered/Not Resolved]
  - Alopecia [Not Recovered/Not Resolved]
  - Irritability [Not Recovered/Not Resolved]
